FAERS Safety Report 4519740-9 (Version None)
Quarter: 2004Q4

REPORT INFORMATION
  Report Type: 
  Country: None (occurrence: None)
  Receive Date: 20041207
  Receipt Date: 20041125
  Transmission Date: 20050328
  Serious: Yes (Other)
  Sender: FDA-Public Use
  Company Number: JP-BRISTOL-MYERS SQUIBB COMPANY-12775979

PATIENT
  Age: 80 Year
  Sex: Male

DRUGS (2)
  1. MITOMYCIN-C [Suspect]
     Indication: GASTRIC CANCER
     Route: 042
  2. FLUOROURACIL [Concomitant]
     Indication: GASTRIC CANCER
     Route: 042

REACTIONS (3)
  - ACUTE MYELOID LEUKAEMIA [None]
  - MYELODYSPLASTIC SYNDROME [None]
  - TREATMENT RELATED SECONDARY MALIGNANCY [None]
